FAERS Safety Report 6127459-6 (Version None)
Quarter: 2009Q1

REPORT INFORMATION
  Report Type: 
  Country: None (occurrence: None)
  Receive Date: 20090323
  Receipt Date: 20090312
  Transmission Date: 20090719
  Serious: Yes (Other)
  Sender: FDA-Public Use
  Company Number: PHFR2005GB02064

PATIENT
  Sex: Male
  Weight: 116.2 kg

DRUGS (13)
  1. CLOZARIL [Suspect]
     Indication: SCHIZOPHRENIA
     Dosage: 850 MG DAILY
     Route: 048
     Dates: start: 20040407
  2. AMLODIPINE [Concomitant]
     Indication: HYPERTENSION
     Dosage: 10 MG DAILY
     Route: 048
  3. SIMVASTATIN [Concomitant]
     Indication: HYPERTRIGLYCERIDAEMIA
     Dosage: 10 MG DAILY
     Route: 048
  4. VALPROATE SODIUM [Concomitant]
     Indication: CONVULSION
     Dosage: 300 MG, BID
     Route: 048
  5. OXYBUTYNIN CHLORIDE [Concomitant]
     Dosage: 5 MG DAILY
     Route: 048
  6. DOTRIMAZOLE [Concomitant]
     Indication: ONYCHOMYCOSIS
     Dosage: UNK
     Route: 061
  7. HYOSCINE HBR HYT [Concomitant]
     Dosage: 300 MCG MANE
  8. PIOGLITAZONE [Concomitant]
     Dosage: 15MG MANE
  9. OMACUR [Concomitant]
     Dosage: 5 CAPS MANE
  10. GLICLAZIDE [Concomitant]
     Dosage: 160 MG, BID
  11. CLOTRIMAZOLE [Concomitant]
     Dosage: 1 %, BID
     Route: 061
  12. BENDROFLUMETHIAZIDE [Concomitant]
     Dosage: 2.5 MG MANE
  13. ASPIRIN [Concomitant]
     Dosage: 75 MG, ONCE/SINGLE

REACTIONS (13)
  - CHEST PAIN [None]
  - DIABETES MELLITUS [None]
  - DYSPNOEA EXERTIONAL [None]
  - HEART RATE INCREASED [None]
  - HYPOPHAGIA [None]
  - INTESTINAL OBSTRUCTION [None]
  - ISCHAEMIA [None]
  - LEFT VENTRICULAR HYPERTROPHY [None]
  - LIVER FUNCTION TEST ABNORMAL [None]
  - TACHYCARDIA [None]
  - ULTRASOUND SCAN ABNORMAL [None]
  - VENTRICULAR TACHYCARDIA [None]
  - VOMITING [None]
